FAERS Safety Report 5169738-5 (Version None)
Quarter: 2006Q4

REPORT INFORMATION
  Report Type: 
  Country: None (occurrence: None)
  Receive Date: 20061212
  Receipt Date: 20061130
  Transmission Date: 20070319
  Serious: Yes (Other)
  Sender: FDA-Public Use
  Company Number: PHEH2006US14820

PATIENT
  Age: 68 Year
  Sex: Female

DRUGS (7)
  1. ZOMETA [Suspect]
     Indication: METASTASES TO BONE
     Dosage: 4 MG Q MONTHLY
     Dates: start: 20051115, end: 20060501
  2. TAXOL [Concomitant]
     Indication: BREAST CANCER
     Dosage: 90 MG/M2, UNK
     Dates: start: 20051108, end: 20060401
  3. CARBOPLATIN [Concomitant]
     Indication: BREAST CANCER
     Dosage: AUC2
     Dates: start: 20051108, end: 20060401
  4. AVASTIN [Concomitant]
     Indication: BREAST CANCER
     Dates: start: 20051221, end: 20060401
  5. MORPHINE [Concomitant]
  6. GABAPENTIN [Concomitant]
     Dosage: 100 MG, QHS
     Dates: start: 20050617
  7. PREMARIN [Concomitant]
     Dosage: 0.45 MG, QD

REACTIONS (6)
  - ARTHRALGIA [None]
  - BONE DISORDER [None]
  - BONE OPERATION [None]
  - BONE PAIN [None]
  - DEEP VEIN THROMBOSIS [None]
  - OSTEONECROSIS [None]
